FAERS Safety Report 23100898 (Version 2)
Quarter: 2023Q4

REPORT INFORMATION
  Report Type: Report from Study
  Country: US (occurrence: US)
  Receive Date: 20231024
  Receipt Date: 20231220
  Transmission Date: 20240110
  Serious: Yes (Hospitalization)
  Sender: FDA-Public Use
  Company Number: US-FERRINGPH-2023FE05129

PATIENT
  Age: 88 Year
  Sex: Female
  Weight: 74.842 kg

DRUGS (1)
  1. REBYOTA [Suspect]
     Active Substance: DONOR HUMAN STOOL
     Indication: Clostridium difficile infection
     Dosage: A SINGLE DOSE OF 150 ML MICROBIOME SUSPENSION.
     Route: 054
     Dates: start: 20230920, end: 20230920

REACTIONS (1)
  - Pneumonia viral [Recovering/Resolving]

NARRATIVE: CASE EVENT DATE: 20231017
